FAERS Safety Report 4398070-2 (Version None)
Quarter: 2004Q3

REPORT INFORMATION
  Report Type: 
  Country: None (occurrence: None)
  Receive Date: 20040713
  Receipt Date: 20040625
  Transmission Date: 20050211
  Serious: Yes (Death, Hospitalization)
  Sender: FDA-Public Use
  Company Number: ATO-04-0527

PATIENT
  Age: 65 Year

DRUGS (1)
  1. TRISENOX [Suspect]
     Indication: MULTIPLE MYELOMA
     Dates: end: 20040429

REACTIONS (7)
  - BRONCHOPNEUMONIA [None]
  - CARDIAC FAILURE CONGESTIVE [None]
  - CHRONIC OBSTRUCTIVE AIRWAYS DISEASE [None]
  - DEHYDRATION [None]
  - DYSPNOEA [None]
  - PULMONARY EMBOLISM [None]
  - THERAPY NON-RESPONDER [None]
